FAERS Safety Report 10067451 (Version 1)
Quarter: 2014Q2

REPORT INFORMATION
  Report Type: Spontaneous
  Country: CA (occurrence: None)
  Receive Date: 20140407
  Receipt Date: 20140407
  Transmission Date: 20141212
  Serious: Yes (Hospitalization)
  Sender: FDA-Public Use
  Company Number: 2014P1002744

PATIENT
  Age: 48 Year
  Sex: Female

DRUGS (6)
  1. CLONIDINE [Suspect]
     Route: 048
  2. PROPANOLOL [Suspect]
     Route: 048
  3. ESCITALOPRAM [Suspect]
     Route: 048
  4. LORAZEPAM [Suspect]
     Route: 048
  5. ATORVASTATIN [Suspect]
     Route: 048
  6. QUETIAPINE [Suspect]
     Route: 048

REACTIONS (10)
  - Blood pressure systolic decreased [None]
  - Coma scale abnormal [None]
  - Blood glucose increased [None]
  - Toxicity to various agents [None]
  - Incorrect dose administered [None]
  - Treatment failure [None]
  - Blood pH decreased [None]
  - PO2 decreased [None]
  - Blood bicarbonate decreased [None]
  - Blood lactic acid increased [None]
